FAERS Safety Report 7178318-1 (Version None)
Quarter: 2010Q4

REPORT INFORMATION
  Report Type: 
  Country: None (occurrence: None)
  Receive Date: 20101220
  Receipt Date: 20101207
  Transmission Date: 20110411
  Serious: Yes (Hospitalization, Other)
  Sender: FDA-Public Use
  Company Number: HR-ELI_LILLY_AND_COMPANY-HR201012002473

PATIENT
  Sex: Female

DRUGS (6)
  1. ZYPREXA [Suspect]
     Dosage: 5 MG, DAILY (1/D)
     Route: 048
     Dates: start: 20070101
  2. LADIOMIL [Concomitant]
     Dosage: 25 MG, UNK
  3. ANAFRANIL [Concomitant]
     Dosage: 25 MG, UNK
  4. NORMABEL [Concomitant]
  5. VELAFAX [Concomitant]
     Dosage: 35.5 MG, UNK
  6. ZALDIAR [Concomitant]

REACTIONS (2)
  - ANAEMIA [None]
  - THROMBOSIS [None]
